FAERS Safety Report 15603413 (Version 2)
Quarter: 2019Q1

REPORT INFORMATION
  Report Type: Report from Study
  Country: CA (occurrence: CA)
  Receive Date: 20181109
  Receipt Date: 20190102
  Transmission Date: 20190417
  Serious: Yes (Hospitalization, Other)
  Sender: FDA-Public Use
  Company Number: CA-MYLANLABS-2018M1029019

PATIENT
  Age: 65 Year
  Sex: Female
  Weight: 68.2 kg

DRUGS (2)
  1. CLOZAPINE. [Suspect]
     Active Substance: CLOZAPINE
     Dosage: 50 MG, QD
     Dates: start: 20160906, end: 20180315
  2. CLOZAPINE. [Suspect]
     Active Substance: CLOZAPINE
     Indication: BIPOLAR DISORDER
     Dosage: UNK
     Dates: start: 20140225

REACTIONS (1)
  - Atrioventricular block complete [Unknown]

NARRATIVE: CASE EVENT DATE: 201803
